FAERS Safety Report 8480832-3 (Version None)
Quarter: 2012Q3

REPORT INFORMATION
  Report Type: 
  Country: None (occurrence: None)
  Receive Date: 20120702
  Receipt Date: 20120621
  Transmission Date: 20120928
  Serious: Yes (Other)
  Sender: FDA-Public Use
  Company Number: US-BAYER-2012-017463

PATIENT
  Age: 23 Year
  Sex: Female
  Weight: 79.365 kg

DRUGS (3)
  1. YAZ [Suspect]
     Indication: ACNE
     Dosage: UNK
     Dates: start: 20080601, end: 20091001
  2. YAZ [Suspect]
     Indication: CONTRACEPTION
  3. FLUOXETINE [Concomitant]
     Indication: DEPRESSION
     Dosage: UNK
     Dates: start: 20060901, end: 20111001

REACTIONS (4)
  - CHOLELITHIASIS [None]
  - POST CHOLECYSTECTOMY SYNDROME [None]
  - CHOLECYSTITIS [None]
  - PAIN [None]
